FAERS Safety Report 4655750-9 (Version None)
Quarter: 2005Q2

REPORT INFORMATION
  Report Type: 
  Country: None (occurrence: None)
  Receive Date: 20050507
  Receipt Date: 20050119
  Transmission Date: 20051028
  Serious: Yes (Hospitalization, Disabling)
  Sender: FDA-Public Use
  Company Number: US-MERCK-0501USA03308

PATIENT
  Age: 60 Year
  Sex: Male
  Weight: 100 kg

DRUGS (4)
  1. VIOXX [Suspect]
     Indication: BACK PAIN
     Route: 048
     Dates: start: 20030201, end: 20040901
  2. VIOXX [Suspect]
     Route: 048
     Dates: start: 20030330, end: 20030403
  3. DYAZIDE [Concomitant]
     Route: 065
  4. LORTAB [Concomitant]
     Route: 065

REACTIONS (9)
  - ACUTE MYOCARDIAL INFARCTION [None]
  - ANGINA PECTORIS [None]
  - AORTIC ANEURYSM [None]
  - CARDIAC DISORDER [None]
  - CHRONIC OBSTRUCTIVE PULMONARY DISEASE [None]
  - CORONARY ARTERY ATHEROSCLEROSIS [None]
  - EMOTIONAL DISTRESS [None]
  - MENTAL STATUS CHANGES [None]
  - PAIN [None]
